FAERS Safety Report 8192250-6 (Version None)
Quarter: 2012Q1

REPORT INFORMATION
  Report Type: 
  Country: None (occurrence: None)
  Receive Date: 20120307
  Receipt Date: 20120305
  Transmission Date: 20120608
  Serious: Yes (Hospitalization)
  Sender: FDA-Public Use
  Company Number: IT-MERCK-1203ITA00011

PATIENT
  Age: 50 Year
  Sex: Female

DRUGS (3)
  1. LAROPIPRANT AND NIACIN [Suspect]
     Route: 048
     Dates: start: 20110701, end: 20120301
  2. [COMPOSITION UNSPECIFIED] [Suspect]
     Route: 065
  3. ZETIA [Suspect]
     Route: 048
     Dates: start: 20110701, end: 20120301

REACTIONS (3)
  - SOPOR [None]
  - TOXICITY TO VARIOUS AGENTS [None]
  - DRUG INTERACTION [None]
